FAERS Safety Report 5695881-8 (Version None)
Quarter: 2008Q2

REPORT INFORMATION
  Report Type: 
  Country: None (occurrence: None)
  Receive Date: 20080403
  Receipt Date: 20080403
  Transmission Date: 20081010
  Serious: Yes (Other)
  Sender: FDA-Public Use
  Company Number: None

PATIENT
  Sex: Female
  Weight: 71.2147 kg

DRUGS (2)
  1. CHANTIX [Suspect]
     Indication: SMOKING CESSATION THERAPY
     Dosage: 1 TAB FOR 3 DAYS  2 TABS FOR 4 DAYS PO
     Route: 048
     Dates: start: 20071010, end: 20071017
  2. CHANTIX [Suspect]
     Indication: SMOKING CESSATION THERAPY
     Dosage: 1 TAB  2 X DAY  PO
     Route: 048
     Dates: start: 20071018, end: 20071203

REACTIONS (8)
  - ABNORMAL DREAMS [None]
  - AFFECTIVE DISORDER [None]
  - ASTHENIA [None]
  - CRYING [None]
  - MYALGIA [None]
  - NAUSEA [None]
  - PATHOLOGICAL GAMBLING [None]
  - SOMNOLENCE [None]
